FAERS Safety Report 15640322 (Version 1)
Quarter: 2018Q4

REPORT INFORMATION
  Report Type: Report from Study
  Country: KR (occurrence: KR)
  Receive Date: 20181120
  Receipt Date: 20181120
  Transmission Date: 20190205
  Serious: Yes (Death, Life-Threatening, Other)
  Sender: FDA-Public Use
  Company Number: KR-JAZZ-2018-KR-016775

PATIENT
  Age: 57 Year
  Sex: Male
  Weight: 83 kg

DRUGS (6)
  1. MEROPENEM. [Concomitant]
     Active Substance: MEROPENEM
     Indication: PROPHYLAXIS
     Dosage: 1 G, TID
     Route: 042
     Dates: start: 20181105, end: 20181109
  2. DEFITELIO [Suspect]
     Active Substance: DEFIBROTIDE SODIUM
     Dosage: 6.25 MG/KG, 6 HOURS DAILY
     Route: 042
     Dates: start: 20180927, end: 20181010
  3. DEFITELIO [Suspect]
     Active Substance: DEFIBROTIDE SODIUM
     Indication: VENOOCCLUSIVE DISEASE
     Dosage: 6.25 MG/KG, 6 HOURS DAILY
     Route: 042
     Dates: start: 20180915, end: 20180922
  4. LEVOFLOXACIN. [Concomitant]
     Active Substance: LEVOFLOXACIN
     Indication: PROPHYLAXIS
     Dosage: 750 MG, QD
     Route: 042
     Dates: start: 20181023, end: 20181109
  5. AMPHOTERICIN B. [Concomitant]
     Active Substance: AMPHOTERICIN B
     Indication: PROPHYLAXIS
     Dosage: 5 MG/KG, QD
     Route: 042
     Dates: start: 20181107, end: 20181109
  6. GANCICLOVIR SODIUM. [Concomitant]
     Active Substance: GANCICLOVIR SODIUM
     Indication: PROPHYLAXIS
     Dosage: 2.5 MG/KG, BID
     Route: 042
     Dates: start: 20181107, end: 20181109

REACTIONS (5)
  - Pyrexia [Recovered/Resolved]
  - Condition aggravated [Fatal]
  - Respiratory failure [Not Recovered/Not Resolved]
  - Melaena [Recovered/Resolved]
  - Myelodysplastic syndrome [Fatal]

NARRATIVE: CASE EVENT DATE: 20180922
